FAERS Safety Report 20411987 (Version 8)
Quarter: 2022Q4

REPORT INFORMATION
  Report Type: Spontaneous
  Country: PL (occurrence: PL)
  Receive Date: 20220201
  Receipt Date: 20221104
  Transmission Date: 20230113
  Serious: Yes (Life-Threatening, Hospitalization, Other)
  Sender: FDA-Public Use
  Company Number: PL-TAKEDA-2022TEU000806

PATIENT
  Age: 29 Year
  Sex: Female

DRUGS (20)
  1. ONDANSETRON [Interacting]
     Active Substance: ONDANSETRON
     Indication: Prophylaxis of nausea and vomiting
     Dosage: 16 MILLIGRAM, QD
     Route: 065
  2. ONDANSETRON [Interacting]
     Active Substance: ONDANSETRON
     Indication: Nausea
  3. ONDANSETRON [Interacting]
     Active Substance: ONDANSETRON
     Indication: Prophylaxis of nausea and vomiting
     Dosage: 16 MILLIGRAM, QD
     Route: 065
  4. VORTIOXETINE [Interacting]
     Active Substance: VORTIOXETINE
     Indication: Obesity
     Dosage: 10 MILLIGRAM, QD
     Route: 048
  5. VORTIOXETINE [Interacting]
     Active Substance: VORTIOXETINE
     Indication: Prophylaxis
     Dosage: 10 MILLIGRAM
     Route: 065
  6. BUPROPION HYDROCHLORIDE\NALTREXONE HYDROCHLORIDE [Interacting]
     Active Substance: BUPROPION HYDROCHLORIDE\NALTREXONE HYDROCHLORIDE
     Indication: Obesity
     Dosage: 8/90 MILLIGRAM, QD
     Route: 048
  7. BUPROPION HYDROCHLORIDE\NALTREXONE HYDROCHLORIDE [Interacting]
     Active Substance: BUPROPION HYDROCHLORIDE\NALTREXONE HYDROCHLORIDE
     Dosage: 8/90 MILLIGRAM, QD
     Route: 048
  8. BUPROPION [Interacting]
     Active Substance: BUPROPION
     Indication: Obesity
     Dosage: 300 MILLIGRAM, QD
     Route: 065
  9. BUPROPION [Interacting]
     Active Substance: BUPROPION
     Dosage: 150 MILLIGRAM, QD
     Route: 048
  10. BUPROPION [Interacting]
     Active Substance: BUPROPION
     Dosage: 180 MILLIGRAM
     Route: 048
  11. BUPROPION HYDROCHLORIDE\NALTREXONE HYDROCHLORIDE [Suspect]
     Active Substance: BUPROPION HYDROCHLORIDE\NALTREXONE HYDROCHLORIDE
     Indication: Obesity
     Dosage: 2 DOSAGE FORM, QD
     Route: 048
  12. BUPROPION HYDROCHLORIDE\NALTREXONE HYDROCHLORIDE [Suspect]
     Active Substance: BUPROPION HYDROCHLORIDE\NALTREXONE HYDROCHLORIDE
     Dosage: 1 DOSAGE FORM, QD
     Route: 048
  13. OZEMPIC [Suspect]
     Active Substance: SEMAGLUTIDE
     Indication: Obesity
     Dosage: 0.5 MILLIGRAM, 1/WEEK
     Route: 058
  14. NALTREXONE [Suspect]
     Active Substance: NALTREXONE
     Indication: Obesity
     Dosage: 8 MILLIGRAM, QD
     Route: 065
  15. NALTREXONE [Suspect]
     Active Substance: NALTREXONE
     Indication: Prophylaxis
     Dosage: 8 MILLIGRAM, QD
     Route: 048
  16. SEMAGLUTIDE [Interacting]
     Active Substance: SEMAGLUTIDE
     Indication: Obesity
     Dosage: 0.5 MILLIGRAM, 1/WEEK
     Route: 058
  17. SEMAGLUTIDE [Interacting]
     Active Substance: SEMAGLUTIDE
     Indication: Prophylaxis
     Dosage: 0.5 MILLIGRAM, 1/WEEK
     Route: 058
  18. SEMAGLUTIDE [Interacting]
     Active Substance: SEMAGLUTIDE
     Dosage: 0.5 MILLIGRAM, 1/WEEK
     Route: 065
  19. BUPROPION HYDROCHLORIDE [Suspect]
     Active Substance: BUPROPION HYDROCHLORIDE
     Indication: Obesity
     Dosage: 150 MILLIGRAM, QD
     Route: 048
  20. BUPROPION HYDROCHLORIDE [Suspect]
     Active Substance: BUPROPION HYDROCHLORIDE
     Indication: Prophylaxis
     Dosage: 300 MILLIGRAM, QD
     Route: 048

REACTIONS (22)
  - Renal failure [Recovered/Resolved]
  - Serotonin syndrome [Recovered/Resolved]
  - Myopathy [Recovered/Resolved]
  - Myoglobinuria [Recovered/Resolved]
  - Rhabdomyolysis [Recovering/Resolving]
  - Urine flow decreased [Recovered/Resolved]
  - Drug interaction [Recovering/Resolving]
  - Urinary retention [Recovering/Resolving]
  - Myalgia [Recovered/Resolved]
  - Muscle spasms [Recovered/Resolved]
  - Chills [Recovered/Resolved]
  - Body temperature increased [Recovered/Resolved]
  - Hyperhidrosis [Recovered/Resolved]
  - Headache [Recovered/Resolved]
  - Product use in unapproved indication [Unknown]
  - Labelled drug-drug interaction medication error [Unknown]
  - Off label use [Unknown]
  - Drug titration error [Unknown]
  - Product prescribing error [Unknown]
  - Contraindicated product administered [Unknown]
  - Contraindicated product prescribed [Unknown]
  - Urine output decreased [Recovered/Resolved]
